FAERS Safety Report 7868114-1 (Version None)
Quarter: 2011Q4

REPORT INFORMATION
  Report Type: 
  Country: None (occurrence: None)
  Receive Date: 20111028
  Receipt Date: 20111020
  Transmission Date: 20120403
  Serious: Yes (Other)
  Sender: FDA-Public Use
  Company Number: PHEH2011US07367

PATIENT
  Sex: Male

DRUGS (7)
  1. STALEVO 100 [Suspect]
     Dosage: 150 MG, UNK
     Route: 048
  2. STALEVO 100 [Suspect]
     Dosage: 75 MG, UNK
  3. MULTI-VITAMIN [Concomitant]
  4. STALEVO 100 [Suspect]
     Dosage: 100 MG, UNK
     Route: 048
  5. ASPIRIN [Concomitant]
  6. VITAMIN D [Concomitant]
     Dosage: 1000 UKN, BID
  7. EXELON [Suspect]
     Dosage: 9.5 MG, DAILY
     Route: 062

REACTIONS (4)
  - HIP FRACTURE [None]
  - FALL [None]
  - NIGHTMARE [None]
  - SOMNOLENCE [None]
